FAERS Safety Report 11242956 (Version 2)
Quarter: 2015Q3

REPORT INFORMATION
  Report Type: Report from Study
  Country: KR (occurrence: KR)
  Receive Date: 20150707
  Receipt Date: 20150714
  Transmission Date: 20151125
  Serious: Yes (Hospitalization)
  Sender: FDA-Public Use
  Company Number: KR-ROCHE-1603306

PATIENT
  Age: 61 Year
  Sex: Female
  Weight: 65.7 kg

DRUGS (9)
  1. FLUOROURACIL. [Suspect]
     Active Substance: FLUOROURACIL
     Indication: COLON CANCER
     Dosage: DATE OF MOST RECENT DOSE PRIOR TO SAE: 16/JUN/2015
     Route: 040
     Dates: start: 20150616
  2. CALCIUM FOLINATE [Suspect]
     Active Substance: LEUCOVORIN CALCIUM
     Indication: COLON CANCER
     Dosage: DATE OF MOST RECENT DOSE PRIOR TO SAE: 16/JUN/2015
     Route: 042
     Dates: start: 20150616
  3. ULCERLMIN [Concomitant]
     Active Substance: SUCRALFATE
     Route: 065
     Dates: start: 20150630
  4. STILNOX [Concomitant]
     Active Substance: ZOLPIDEM TARTRATE
     Route: 065
     Dates: start: 20150630
  5. OXALIPLATIN. [Suspect]
     Active Substance: OXALIPLATIN
     Indication: COLON CANCER
     Dosage: DATE OF MOST RECENT DOSE PRIOR TO SAE: 16/JUN/2015
     Route: 042
     Dates: start: 20150616
  6. CURAN [Concomitant]
     Route: 065
     Dates: start: 20150630
  7. BEVACIZUMAB [Suspect]
     Active Substance: BEVACIZUMAB
     Indication: COLON CANCER
     Dosage: DATE OF MOST RECENT DOSE PRIOR TO SAE: 16/JUN/2015
     Route: 042
     Dates: start: 20150616
  8. TYLENOL [Concomitant]
     Active Substance: ACETAMINOPHEN
     Route: 065
     Dates: start: 20150630
  9. FLUOROURACIL. [Suspect]
     Active Substance: FLUOROURACIL
     Dosage: DATE OF MOST RECENT DOSE PRIOR TO SAE: 16/JUN/2015
     Route: 042
     Dates: start: 20150616

REACTIONS (1)
  - Febrile neutropenia [Recovered/Resolved]

NARRATIVE: CASE EVENT DATE: 20150701
